FAERS Safety Report 9216398 (Version 1)
Quarter: 2013Q2

REPORT INFORMATION
  Report Type: Spontaneous
  Country: GB (occurrence: GB)
  Receive Date: 20130408
  Receipt Date: 20130408
  Transmission Date: 20140414
  Serious: No
  Sender: FDA-Public Use
  Company Number: PHFR2013GB001785

PATIENT
  Sex: Male
  Weight: 64 kg

DRUGS (3)
  1. TASIGNA [Suspect]
     Indication: CHRONIC MYELOID LEUKAEMIA
     Dosage: 400 MG, BID
     Route: 048
     Dates: start: 201103
  2. LEVOTHYROXINE [Concomitant]
     Indication: HYPOTHYROIDISM
     Dosage: 125 UG, UNK
     Dates: start: 2000
  3. ADCAL D3 [Concomitant]
     Dosage: 2 DF, UNK
     Dates: start: 2009

REACTIONS (1)
  - Hypertension [Recovering/Resolving]
